FAERS Safety Report 12832877 (Version 1)
Quarter: 2016Q4

REPORT INFORMATION
  Report Type: Report from Study
  Country: CZ (occurrence: CZ)
  Receive Date: 20161010
  Receipt Date: 20161010
  Transmission Date: 20170207
  Serious: Yes (Hospitalization)
  Sender: FDA-Public Use
  Company Number: CZ-BIOGEN-2016BI00301748

PATIENT
  Age: 55 Year
  Sex: Female

DRUGS (6)
  1. XALATAN [Concomitant]
     Active Substance: LATANOPROST
     Indication: GLAUCOMA
     Dosage: 2/INTRAOCULAR TOPICAL
     Route: 031
     Dates: start: 20151112
  2. TRITACE [Concomitant]
     Active Substance: RAMIPRIL
     Indication: HYPERTENSION
     Route: 048
     Dates: start: 20070101
  3. TYSABRI [Suspect]
     Active Substance: NATALIZUMAB
     Indication: MULTIPLE SCLEROSIS
     Route: 065
     Dates: start: 20110314
  4. TYSABRI [Suspect]
     Active Substance: NATALIZUMAB
     Route: 065
     Dates: start: 20160216
  5. CIPRALEX [Concomitant]
     Active Substance: ESCITALOPRAM OXALATE
     Indication: DEPRESSION
     Route: 048
     Dates: start: 20070101
  6. FAMPYRA [Suspect]
     Active Substance: DALFAMPRIDINE
     Indication: PARAPARESIS
     Route: 048
     Dates: start: 20120827

REACTIONS (4)
  - Rib fracture [Recovered/Resolved]
  - Road traffic accident [Recovered/Resolved]
  - Intentional product use issue [Not Recovered/Not Resolved]
  - Splenic haematoma [Recovered/Resolved]

NARRATIVE: CASE EVENT DATE: 20120827
